FAERS Safety Report 8541200-9 (Version None)
Quarter: 2012Q3

REPORT INFORMATION
  Report Type: 
  Country: None (occurrence: None)
  Receive Date: 20120726
  Receipt Date: 20120720
  Transmission Date: 20120928
  Serious: Yes (Death, Life-Threatening)
  Sender: FDA-Public Use
  Company Number: FR-BAYER-2012-072601

PATIENT
  Age: 83 Year
  Sex: Male

DRUGS (3)
  1. CIPROFLOXACIN HYDROCHLORIDE [Suspect]
     Indication: PROSTATITIS
     Dosage: UNK
     Route: 048
     Dates: start: 20120426, end: 20120513
  2. BACTRIM [Suspect]
     Indication: PROSTATITIS
     Dosage: 1 DF, BID
     Route: 048
     Dates: start: 20120514, end: 20120515
  3. AUGMENTIN '500' [Suspect]
     Indication: PROSTATITIS
     Dosage: UNK
     Dates: start: 20120424, end: 20120501

REACTIONS (1)
  - TOXIC EPIDERMAL NECROLYSIS [None]
